FAERS Safety Report 8236664-4 (Version None)
Quarter: 2012Q1

REPORT INFORMATION
  Report Type: 
  Country: None (occurrence: None)
  Receive Date: 20120309
  Receipt Date: 20110610
  Transmission Date: 20120608
  Serious: Yes (Other)
  Sender: FDA-Public Use
  Company Number: PHHY2011US30951

PATIENT
  Age: 49 Year
  Sex: Female
  Weight: 68 kg

DRUGS (5)
  1. EXTAVIA [Suspect]
     Indication: MULTIPLE SCLEROSIS
     Dosage: 0.125 MG, QOD;  0.50 MG ; 1 MG ; SUBCUTANEOUS
     Route: 058
     Dates: start: 20110319
  2. EXTAVIA [Suspect]
     Indication: MULTIPLE SCLEROSIS
     Dosage: 0.125 MG, QOD;  0.50 MG ; 1 MG ; SUBCUTANEOUS
     Route: 058
     Dates: start: 20110412
  3. ANTIDEPRESSANTS (NO INGREDIENT/SUBSTANCES) [Concomitant]
  4. NOTRIPTYLINE [Concomitant]
  5. AMANTADINE HCL [Concomitant]

REACTIONS (5)
  - NEGATIVE THOUGHTS [None]
  - DEPRESSION [None]
  - DIZZINESS [None]
  - HEADACHE [None]
  - VERTIGO [None]
